FAERS Safety Report 25507491 (Version 1)
Quarter: 2025Q3

REPORT INFORMATION
  Report Type: Spontaneous
  Country: EU (occurrence: EU)
  Receive Date: 20250703
  Receipt Date: 20250703
  Transmission Date: 20251020
  Serious: Yes (Hospitalization, Other)
  Sender: SANDOZ
  Company Number: EU-SANDOZ-SDZ2025LT046328

PATIENT
  Age: 54 Year
  Sex: Male

DRUGS (2)
  1. PENICILLIN G [Suspect]
     Active Substance: PENICILLIN G
     Indication: Neurosyphilis
     Dosage: 400000 IU, Q3H
     Route: 042
  2. PENICILLIN G [Suspect]
     Active Substance: PENICILLIN G
     Dosage: 4000000 IU, Q4H
     Route: 042

REACTIONS (1)
  - Febrile neutropenia [Recovered/Resolved]
